FAERS Safety Report 20689932 (Version 2)
Quarter: 2022Q2

REPORT INFORMATION
  Report Type: Spontaneous
  Country: IT (occurrence: IT)
  Receive Date: 20220408
  Receipt Date: 20220412
  Transmission Date: 20220721
  Serious: Yes (Death, Hospitalization, Other)
  Sender: FDA-Public Use
  Company Number: IT-GSKCCFEMEA-Case-01456013_AE-56400

PATIENT
  Age: 83 Year
  Sex: Female

DRUGS (14)
  1. COVID-19 VACCINE NOS [Suspect]
     Active Substance: COVID-19 VACCINE NOS
     Indication: COVID-19 immunisation
     Dosage: DOSE NUMBER UNKNOWN, SINGLE
     Dates: start: 202111, end: 202111
  2. HEPARIN SODIUM [Suspect]
     Active Substance: HEPARIN SODIUM
  3. LEVOFLOXACIN [Suspect]
     Active Substance: LEVOFLOXACIN
     Indication: Product used for unknown indication
     Dosage: 2X 500 MG, 2X/DAY, (2 AT 12 PM AND AFTER 12 HOURS ANOTHER TWO)
  4. LEVOFLOXACIN [Suspect]
     Active Substance: LEVOFLOXACIN
     Dosage: 4 DF, QD 500 MG
  5. INFLUENZA VIRUS VACCINE [Suspect]
     Active Substance: INFLUENZA VIRUS VACCINE
     Indication: Prophylaxis
     Dosage: UNK
     Dates: start: 202111, end: 202111
  6. CHOLINE [Suspect]
     Active Substance: CHOLINE
     Indication: Glaucoma
  7. CHOLINE ALFOSCERATE [Suspect]
     Active Substance: CHOLINE ALFOSCERATE
     Indication: Product used for unknown indication
     Dosage: UNK, 600
  8. AUGMENTIN [Suspect]
     Active Substance: AMOXICILLIN\CLAVULANATE POTASSIUM
     Indication: Product used for unknown indication
     Dosage: UNK
  9. LEVOTHYROXINE SODIUM [Concomitant]
     Active Substance: LEVOTHYROXINE SODIUM
     Indication: Product used for unknown indication
     Dosage: UNK, 100
  10. CORDARONE [Concomitant]
     Active Substance: AMIODARONE HYDROCHLORIDE
     Indication: Product used for unknown indication
     Dosage: UNK. 200
  11. BISOPROLOL [Concomitant]
     Active Substance: BISOPROLOL
     Indication: Product used for unknown indication
     Dosage: UNK, 1.25
  12. SIMVASTATIN [Concomitant]
     Active Substance: SIMVASTATIN
     Indication: Product used for unknown indication
     Dosage: UNK, 20
  13. LATANOPROST [Concomitant]
     Active Substance: LATANOPROST
     Indication: Product used for unknown indication
     Dosage: UNK, 50
  14. CREON [Concomitant]
     Active Substance: PANCRELIPASE AMYLASE\PANCRELIPASE LIPASE\PANCRELIPASE PROTEASE

REACTIONS (19)
  - Death [Fatal]
  - Peripheral swelling [Unknown]
  - Seizure [Unknown]
  - Somnolence [Unknown]
  - Intestinal obstruction [Unknown]
  - Syncope [Unknown]
  - Pain [Unknown]
  - General physical health deterioration [Unknown]
  - Skin lesion [Unknown]
  - Vomiting [Unknown]
  - Fat necrosis [Unknown]
  - Fasciitis [Unknown]
  - Eating disorder [Unknown]
  - Pigmentation disorder [Unknown]
  - Nervous system disorder [Unknown]
  - Confusional state [Unknown]
  - Extra dose administered [Unknown]
  - Product prescribing error [Unknown]
  - Product use issue [Unknown]

NARRATIVE: CASE EVENT DATE: 20211101
